FAERS Safety Report 21874046 (Version 1)
Quarter: 2023Q1

REPORT INFORMATION
  Report Type: Spontaneous
  Country: None (occurrence: US)
  Receive Date: 20230117
  Receipt Date: 20230117
  Transmission Date: 20230418
  Serious: No
  Sender: FDA-Public Use
  Company Number: US-Nexgen Pharma, Inc.-2136794

PATIENT
  Age: 73 Year
  Sex: Female

DRUGS (3)
  1. RELTONE 400 MG [Suspect]
     Active Substance: URSODIOL
     Indication: Cholelithiasis
     Route: 048
     Dates: start: 20221229, end: 2022
  2. BENADRYL [Concomitant]
     Active Substance: DIPHENHYDRAMINE HYDROCHLORIDE
     Route: 048
  3. NURTEC ODT [Concomitant]
     Active Substance: RIMEGEPANT SULFATE
     Route: 048

REACTIONS (3)
  - Alopecia [Recovering/Resolving]
  - Rash [Recovering/Resolving]
  - Back pain [Unknown]
